FAERS Safety Report 5963275-3 (Version None)
Quarter: 2008Q4

REPORT INFORMATION
  Report Type: 
  Country: None (occurrence: None)
  Receive Date: 20081120
  Receipt Date: 20081120
  Transmission Date: 20090506
  Serious: Yes (Hospitalization)
  Sender: FDA-Public Use
  Company Number: None

PATIENT
  Age: 67 Year
  Sex: Male
  Weight: 123 kg

DRUGS (2)
  1. METOLAZONE [Suspect]
     Indication: HYPERTENSION
     Dosage: 2.5 MG OTHER PO
     Route: 048
     Dates: start: 20080904, end: 20081030
  2. METOLAZONE [Suspect]
     Indication: OEDEMA PERIPHERAL
     Dosage: 2.5 MG OTHER PO
     Route: 048
     Dates: start: 20080904, end: 20081030

REACTIONS (3)
  - DEHYDRATION [None]
  - HYPOKALAEMIA [None]
  - RENAL FAILURE ACUTE [None]
